FAERS Safety Report 17579660 (Version 4)
Quarter: 2023Q4

REPORT INFORMATION
  Report Type: Spontaneous
  Country: US (occurrence: US)
  Receive Date: 20200325
  Receipt Date: 20231030
  Transmission Date: 20240110
  Serious: Yes (Other)
  Sender: FDA-Public Use
  Company Number: US-GILEAD-2020-0456015

PATIENT
  Age: 39 Year
  Sex: Male
  Weight: 77 kg

DRUGS (38)
  1. TRUVADA [Suspect]
     Active Substance: EMTRICITABINE\TENOFOVIR DISOPROXIL FUMARATE
     Indication: HIV infection
     Dosage: UNK
     Route: 048
     Dates: start: 2012
  2. TRUVADA [Suspect]
     Active Substance: EMTRICITABINE\TENOFOVIR DISOPROXIL FUMARATE
     Dosage: UNK
     Route: 048
     Dates: start: 20060424, end: 20160715
  3. DESCOVY [Concomitant]
     Active Substance: EMTRICITABINE\TENOFOVIR ALAFENAMIDE FUMARATE
     Indication: HIV infection
     Dosage: UNK
     Dates: start: 20160801
  4. PREVACID [Concomitant]
     Active Substance: LANSOPRAZOLE
     Indication: Gastrooesophageal reflux disease
     Dosage: UNK
     Dates: start: 20000325
  5. APTIVUS [Concomitant]
     Active Substance: TIPRANAVIR
     Indication: HIV infection
     Dosage: UNK
     Dates: start: 20060424, end: 20080930
  6. APTIVUS [Concomitant]
     Active Substance: TIPRANAVIR
     Dosage: UNK
     Dates: start: 20110203, end: 20110402
  7. CRIXIVAN [Concomitant]
     Active Substance: INDINAVIR SULFATE
     Indication: HIV infection
     Dosage: UNK
     Dates: start: 19980923, end: 20060602
  8. EPIVIR [Concomitant]
     Active Substance: LAMIVUDINE
     Indication: HIV infection
     Dosage: UNK
     Dates: start: 19960426, end: 19971210
  9. EPIVIR [Concomitant]
     Active Substance: LAMIVUDINE
     Dosage: UNK
     Dates: start: 19980923, end: 20060602
  10. FUZEON [Concomitant]
     Active Substance: ENFUVIRTIDE
  11. INTELENCE [Concomitant]
     Active Substance: ETRAVIRINE
     Indication: HIV infection
     Dosage: UNK
     Dates: start: 20081029, end: 20110924
  12. INTELENCE [Concomitant]
     Active Substance: ETRAVIRINE
     Dosage: UNK
     Dates: start: 20140313
  13. INVIRASE [Concomitant]
     Active Substance: SAQUINAVIR MESYLATE
     Indication: HIV infection
     Dosage: UNK
     Dates: start: 19971201
  14. ISENTRESS [Concomitant]
     Active Substance: RALTEGRAVIR POTASSIUM
     Indication: HIV infection
     Dosage: UNK
     Dates: start: 20081029, end: 20110924
  15. ISENTRESS [Concomitant]
     Active Substance: RALTEGRAVIR POTASSIUM
     Dosage: UNK
     Dates: start: 20140313
  16. NORVIR [Concomitant]
     Active Substance: RITONAVIR
     Indication: HIV infection
     Dosage: UNK
     Dates: start: 20000519, end: 20001130
  17. NORVIR [Concomitant]
     Active Substance: RITONAVIR
     Dosage: UNK
     Dates: start: 20060424, end: 20110924
  18. NORVIR [Concomitant]
     Active Substance: RITONAVIR
     Dosage: UNK
     Dates: start: 20140312
  19. PREZISTA [Concomitant]
     Active Substance: DARUNAVIR ETHANOLATE
     Indication: HIV infection
     Dosage: UNK
     Dates: start: 20081201, end: 20110924
  20. PREZISTA [Concomitant]
     Active Substance: DARUNAVIR ETHANOLATE
     Dosage: UNK
     Dates: start: 20140313, end: 20181229
  21. PREZISTA [Concomitant]
     Active Substance: DARUNAVIR ETHANOLATE
     Dosage: UNK
     Dates: start: 20190128
  22. RETROVIR [Concomitant]
     Active Substance: ZIDOVUDINE
     Indication: HIV infection
     Dosage: UNK
     Dates: start: 19940607, end: 19960830
  23. VIDEX [Concomitant]
     Active Substance: DIDANOSINE
     Indication: HIV infection
     Dosage: UNK
     Dates: start: 19971218, end: 19980825
  24. VIRACEPT [Concomitant]
     Active Substance: NELFINAVIR MESYLATE
     Indication: HIV infection
     Dosage: UNK
     Dates: start: 19980110, end: 19980825
  25. VIRAMUNE [Concomitant]
     Active Substance: NEVIRAPINE
     Indication: HIV infection
     Dosage: UNK
     Dates: start: 19971218, end: 19980717
  26. ZERIT [Concomitant]
     Active Substance: STAVUDINE
     Indication: HIV infection
     Dosage: UNK
     Dates: start: 19980913, end: 20050903
  27. ZERIT [Concomitant]
     Active Substance: STAVUDINE
     Dosage: UNK
     Dates: start: 19960926, end: 19971210
  28. AMICAR [Concomitant]
     Active Substance: AMINOCAPROIC ACID
     Indication: Haemorrhage
     Dosage: UNK
     Dates: start: 201703, end: 20171230
  29. DAPSONE [Concomitant]
     Active Substance: DAPSONE
     Indication: Bacterial infection
     Dosage: UNK
     Dates: start: 20010221, end: 20090413
  30. DIFLUCAN [Concomitant]
     Active Substance: FLUCONAZOLE
     Indication: Fungal infection
     Dosage: UNK
     Dates: start: 20010221, end: 20020916
  31. FORTOVASE [Concomitant]
     Active Substance: SAQUINAVIR
     Indication: HIV infection
     Dosage: UNK
     Dates: start: 19980120, end: 19980825
  32. MEVACOR [Concomitant]
     Active Substance: LOVASTATIN
     Indication: Blood cholesterol increased
  33. MELOXICAM [Concomitant]
     Active Substance: MELOXICAM
     Indication: Inflammation
     Dosage: UNK
     Dates: start: 20200325
  34. MELOXICAM [Concomitant]
     Active Substance: MELOXICAM
     Indication: Pain
  35. GABAPENTIN [Concomitant]
     Active Substance: GABAPENTIN
     Indication: Pain
     Dosage: UNK
     Dates: start: 20170111, end: 20180430
  36. MILK THISTLE LIVER TONIC [Concomitant]
  37. VITAFUSION MULTIVITES [Concomitant]
     Dosage: UNK
     Dates: start: 2019
  38. ELOCTATE [Concomitant]
     Active Substance: EFMOROCTOCOG ALFA

REACTIONS (11)
  - Osteoporosis [Not Recovered/Not Resolved]
  - Chronic kidney disease [Not Recovered/Not Resolved]
  - Bone demineralisation [Unknown]
  - Pain [Not Recovered/Not Resolved]
  - Emotional distress [Not Recovered/Not Resolved]
  - Anxiety [Not Recovered/Not Resolved]
  - Anhedonia [Not Recovered/Not Resolved]
  - Economic problem [Unknown]
  - Decreased activity [Not Recovered/Not Resolved]
  - Depression [Not Recovered/Not Resolved]
  - Bone density decreased [Not Recovered/Not Resolved]

NARRATIVE: CASE EVENT DATE: 20100601
